FAERS Safety Report 18257755 (Version 1)
Quarter: 2020Q3

REPORT INFORMATION
  Report Type: Spontaneous
  Country: US (occurrence: US)
  Receive Date: 20200911
  Receipt Date: 20200911
  Transmission Date: 20201103
  Serious: Yes (Life-Threatening, Hospitalization)
  Sender: FDA-Public Use
  Company Number: US-MYLANLABS-2020M1077992

PATIENT
  Age: 5 Decade
  Sex: Female

DRUGS (4)
  1. HYDROCORTISONE. [Suspect]
     Active Substance: HYDROCORTISONE
     Indication: JUVENILE IDIOPATHIC ARTHRITIS
     Dosage: 20 MILLIGRAM, QD(IN THE MORNING)
     Route: 065
  2. HYDROCORTISONE. [Suspect]
     Active Substance: HYDROCORTISONE
     Dosage: 10 MILLIGRAM, QD(IN THE AFTERNOON)
     Route: 065
  3. HYDROXYCHLOROQUINE [Suspect]
     Active Substance: HYDROXYCHLOROQUINE
     Indication: JUVENILE IDIOPATHIC ARTHRITIS
     Dosage: 200 MILLIGRAM
     Route: 065
  4. ANAKINRA [Suspect]
     Active Substance: ANAKINRA
     Indication: JUVENILE IDIOPATHIC ARTHRITIS
     Dosage: 100 MILLIGRAM, QD
     Route: 058

REACTIONS (13)
  - Respiratory acidosis [Recovering/Resolving]
  - Respiratory failure [Recovering/Resolving]
  - Pneumothorax [Recovering/Resolving]
  - Toxicity to various agents [Recovering/Resolving]
  - Acute respiratory failure [Recovering/Resolving]
  - Cervical vertebral fracture [Unknown]
  - Off label use [Unknown]
  - Encephalopathy [Recovering/Resolving]
  - Diaphragm muscle weakness [Recovering/Resolving]
  - Fall [Unknown]
  - Myopathy toxic [Recovering/Resolving]
  - Tibia fracture [Unknown]
  - Subarachnoid haemorrhage [Unknown]
